FAERS Safety Report 4689056-9 (Version None)
Quarter: 2005Q2

REPORT INFORMATION
  Report Type: 
  Country: None (occurrence: None)
  Receive Date: 20050613
  Receipt Date: 20050601
  Transmission Date: 20051028
  Serious: Yes (Other)
  Sender: FDA-Public Use
  Company Number: PHHO2005ES08658

PATIENT
  Age: 77 Year
  Sex: Male

DRUGS (1)
  1. ENA 713 [Suspect]
     Indication: DEMENTIA ALZHEIMER'S TYPE

REACTIONS (1)
  - AMAUROSIS FUGAX [None]
